FAERS Safety Report 17690814 (Version 1)
Quarter: 2020Q2

REPORT INFORMATION
  Report Type: Spontaneous
  Country: ES (occurrence: ES)
  Receive Date: 20200422
  Receipt Date: 20200422
  Transmission Date: 20200714
  Serious: Yes (Hospitalization, Other)
  Sender: FDA-Public Use
  Company Number: ES-SNT-000006

PATIENT
  Age: 49 Year
  Sex: Male

DRUGS (3)
  1. VINCRISTINE [Interacting]
     Active Substance: VINCRISTINE
     Indication: PRODUCT USED FOR UNKNOWN INDICATION
     Route: 065
  2. POSACONAZOLE [Suspect]
     Active Substance: POSACONAZOLE
     Indication: FUNGAL INFECTION
     Route: 048
  3. IMATINIB/IMATINIB MESILATE [Concomitant]
     Active Substance: IMATINIB
     Indication: PRODUCT USED FOR UNKNOWN INDICATION
     Route: 065

REACTIONS (7)
  - Ileus paralytic [Recovered/Resolved]
  - Hyponatraemia [Recovered/Resolved]
  - Drug interaction [Unknown]
  - Inappropriate antidiuretic hormone secretion [Recovered/Resolved]
  - Abdominal pain [Recovered/Resolved]
  - Paraesthesia [Recovered/Resolved]
  - Constipation [Recovered/Resolved]
